FAERS Safety Report 7493823-6 (Version None)
Quarter: 2011Q2

REPORT INFORMATION
  Report Type: 
  Country: None (occurrence: None)
  Receive Date: 20110520
  Receipt Date: 20110510
  Transmission Date: 20111010
  Serious: Yes (Hospitalization)
  Sender: FDA-Public Use
  Company Number: US-EISAI INC-E3810-04671-SPO-US

PATIENT
  Sex: Female

DRUGS (2)
  1. ACETAMINOPHEN [Concomitant]
  2. ACIPHEX [Suspect]
     Route: 048
     Dates: start: 20010101

REACTIONS (2)
  - ABDOMINAL DISTENSION [None]
  - CHOLELITHIASIS [None]
